FAERS Safety Report 8928038 (Version 1)
Quarter: 2012Q4

REPORT INFORMATION
  Report Type: Spontaneous
  Country: US (occurrence: None)
  Receive Date: 20121120
  Receipt Date: 20121120
  Transmission Date: 20130627
  Serious: Yes (Death, Hospitalization, Other)
  Sender: FDA-Public Use
  Company Number: 2012P1064898

PATIENT
  Age: 64 Year
  Sex: Female

DRUGS (2)
  1. HYDROXYCHLOROQUINE [Suspect]
  2. HYDROXYCHLOROQUINE [Suspect]

REACTIONS (14)
  - Atrial fibrillation [None]
  - Sick sinus syndrome [None]
  - Cardiotoxicity [None]
  - Muscular weakness [None]
  - Dyspnoea [None]
  - Oedema peripheral [None]
  - Troponin I increased [None]
  - Diastolic dysfunction [None]
  - Differential white blood cell count abnormal [None]
  - Ventricular hypertrophy [None]
  - Myopathy [None]
  - Respiratory failure [None]
  - Cardiomegaly [None]
  - Diaphragmatic disorder [None]
